FAERS Safety Report 25817955 (Version 1)
Quarter: 2025Q3

REPORT INFORMATION
  Report Type: Spontaneous
  Country: EU (occurrence: EU)
  Receive Date: 20250918
  Receipt Date: 20250918
  Transmission Date: 20251021
  Serious: Yes (Hospitalization)
  Sender: SANOFI AVENTIS
  Company Number: None

PATIENT
  Age: 62 Year
  Sex: Female
  Weight: 118 kg

DRUGS (7)
  1. REPEVAX [Suspect]
     Active Substance: DIPHTHERIA AND TETANUS TOXOIDS AND ACELLULAR PERTUSSIS ADSORBED AND INACTIVATED POLIOVIRUS VACCINE
     Indication: Immunisation
     Route: 030
     Dates: start: 20250820, end: 20250820
  2. CLINDAMYCIN PHOSPHATE [Suspect]
     Active Substance: CLINDAMYCIN PHOSPHATE
     Indication: Infection
     Dosage: 2400 MG, QD
     Route: 042
     Dates: start: 20250814, end: 20250819
  3. CLINDAMYCIN PHOSPHATE [Suspect]
     Active Substance: CLINDAMYCIN PHOSPHATE
     Dosage: 2400 MG, QD
     Route: 048
     Dates: start: 20250819, end: 20250821
  4. ENOXAPARIN SODIUM [Suspect]
     Active Substance: ENOXAPARIN SODIUM
     Indication: Thrombosis prophylaxis
     Route: 058
     Dates: start: 20250814, end: 20250824
  5. PREGABALIN [Suspect]
     Active Substance: PREGABALIN
     Indication: Neuralgia
     Dosage: 300 MG, QD
     Route: 048
     Dates: start: 20250820, end: 20250822
  6. BUMETANIDE [Suspect]
     Active Substance: BUMETANIDE
     Dosage: 2 MG, QD
     Route: 048
     Dates: start: 20250818, end: 20250821
  7. FUNGIZONE [Suspect]
     Active Substance: AMPHOTERICIN B
     Indication: Oral fungal infection
     Dosage: 300 MG, QD
     Route: 048
     Dates: start: 20250818, end: 20250823

REACTIONS (1)
  - Rash maculo-papular [Recovered/Resolved]

NARRATIVE: CASE EVENT DATE: 20250822
